FAERS Safety Report 6843010-7 (Version None)
Quarter: 2010Q3

REPORT INFORMATION
  Report Type: 
  Country: None (occurrence: None)
  Receive Date: 20100714
  Receipt Date: 20071214
  Transmission Date: 20110219
  Serious: Yes (Other)
  Sender: FDA-Public Use
  Company Number: US-PFIZER INC-2007066037

PATIENT
  Age: 59 Year
  Sex: Female
  Weight: 72.6 kg

DRUGS (3)
  1. CHANTIX [Suspect]
     Indication: SMOKING CESSATION THERAPY
     Dates: start: 20070701, end: 20070101
  2. PREMPRO [Concomitant]
  3. LOVASTATIN [Concomitant]

REACTIONS (4)
  - ANXIETY [None]
  - DEPRESSION [None]
  - DRUG TOXICITY [None]
  - FEELING JITTERY [None]
